FAERS Safety Report 6262995-3 (Version None)
Quarter: 2009Q3

REPORT INFORMATION
  Report Type: 
  Country: None (occurrence: None)
  Receive Date: 20090710
  Receipt Date: 20070516
  Transmission Date: 20100115
  Serious: Yes (Death, Other)
  Sender: FDA-Public Use
  Company Number: US-ASTRAZENECA-2006UW11172

PATIENT
  Age: 414 Month
  Sex: Female
  Weight: 95.7 kg

DRUGS (17)
  1. SEROQUEL [Suspect]
     Indication: DEPRESSION
     Dosage: 100 - 800 MG/DAY
     Route: 048
     Dates: start: 20020819
  2. SEROQUEL [Suspect]
     Route: 048
     Dates: start: 20040101, end: 20060101
  3. SEROQUEL [Suspect]
     Dosage: 100 - 800 MG/DAY
     Route: 048
     Dates: start: 20060421
  4. ZYPREXA [Suspect]
     Route: 065
  5. GEODON [Concomitant]
  6. RISPERDAL [Concomitant]
  7. VICODIN [Concomitant]
     Indication: PAIN
     Dosage: 5 + 500 MG 2 TABLET EVERY 6 HOURLY, 2 TABLET 4 HOURLY
     Route: 048
  8. NEURONTIN [Concomitant]
     Dosage: 600 MG AT MORNING AND AFTERNOON, 900 AT NIGHT
     Route: 048
  9. CELEXA [Concomitant]
     Route: 048
  10. GLUCOPHAGE [Concomitant]
     Dosage: 850 MG EVERY DAY , 850 MG TWO TIMES DAY
     Route: 048
  11. LITHIUM [Concomitant]
     Route: 048
  12. HUMULIN R [Concomitant]
     Dosage: 100 UNITS
     Route: 065
  13. KLONOPIN [Concomitant]
     Route: 048
  14. TRIMETHOPRIM + SULFAMETHOXAZOLE [Concomitant]
     Dosage: 160 / 800 MG
     Route: 048
  15. PHENAZOPYRIDINE HCL TAB [Concomitant]
     Route: 048
  16. ZESTRIL [Concomitant]
     Route: 048
  17. LIPITOR [Concomitant]
     Route: 065

REACTIONS (4)
  - DEATH [None]
  - DIABETES MELLITUS [None]
  - DIABETIC NEPHROPATHY [None]
  - GESTATIONAL DIABETES [None]
